FAERS Safety Report 23853050 (Version 1)
Quarter: 2024Q2

REPORT INFORMATION
  Report Type: Spontaneous
  Country: GB (occurrence: GB)
  Receive Date: 20240514
  Receipt Date: 20240514
  Transmission Date: 20240716
  Serious: Yes (Disabling, Other)
  Sender: FDA-Public Use
  Company Number: None

PATIENT
  Age: 64 Year
  Sex: Female
  Weight: 72 kg

DRUGS (7)
  1. CLARITHROMYCIN [Suspect]
     Active Substance: CLARITHROMYCIN
     Indication: Otitis media acute
     Dosage: FOR 7 DAYS, TO TREA...
     Route: 065
     Dates: start: 20240423
  2. ESOMEPRAZOLE [Concomitant]
     Active Substance: ESOMEPRAZOLE
     Dosage: UNTIL SHE HAD OGD
     Dates: start: 20231020
  3. BRINZOLAMIDE [Concomitant]
     Active Substance: BRINZOLAMIDE
     Dosage: ONE DROP BOTH EYES- TWICE DAILY
     Dates: start: 20231020
  4. UNSPECIFIED INGREDIENT [Concomitant]
     Active Substance: UNSPECIFIED INGREDIENT
     Dosage: 1 DROP IN BOTH EYES- TWICE DAILY
     Dates: start: 20231020
  5. TIMOLOL [Concomitant]
     Active Substance: TIMOLOL
     Dosage: ONE DROP BOTH EYES- ONCE DAILY
     Dates: start: 20231020
  6. METOCLOPRAMIDE [Concomitant]
     Active Substance: METOCLOPRAMIDE
     Dosage: TIME INTERVAL: AS NECESSARY: TAKE ONE 3 TIMES/DAY AS NEEDED
     Dates: start: 20240328, end: 20240329
  7. FLUTICASONE PROPIONATE [Concomitant]
     Active Substance: FLUTICASONE PROPIONATE
     Dosage: TWO SPRAYS TWICE DAILY IN BOTH NOSTRILS FOR 2 W...
     Dates: start: 20231020, end: 20240404

REACTIONS (2)
  - Dizziness [Recovered/Resolved]
  - Altered visual depth perception [Recovered/Resolved]

NARRATIVE: CASE EVENT DATE: 20240428
